FAERS Safety Report 9064686 (Version 2)
Quarter: 2014Q1

REPORT INFORMATION
  Report Type: Other
  Country: US (occurrence: US)
  Receive Date: 20130129
  Receipt Date: 20140224
  Transmission Date: 20141002
  Serious: Yes (Other)
  Sender: FDA-Public Use
  Company Number: US-RB-048998-13

PATIENT
  Age: 22 Year
  Sex: Male

DRUGS (6)
  1. SUBOXONE [Suspect]
     Indication: BACK PAIN
     Dosage: DOSING DETAILS UNKNOWN
     Route: 065
  2. SUBOXONE [Suspect]
     Indication: BACK PAIN
     Dosage: DOSING DETAILS UNKNOWN
     Route: 065
  3. MORPHINE [Suspect]
     Indication: PAIN
     Dosage: DOSING DETAILS UNKNOWN
     Route: 058
  4. REMIFENTANIL [Suspect]
     Indication: PAIN
     Dosage: DOSING DETAILS UNKNOWN
     Route: 065
  5. REMIFENTANIL [Suspect]
     Dosage: DOSING DETAILS UNKNOWN; THE PATIENT RECEIVED AN INFUSION AT A DOSE OF 1.7 UG/KG/MIN
     Route: 065
  6. LORAZEPAM [Suspect]
     Indication: PAIN
     Dosage: DOSING DETAILS UNKNOWN
     Route: 042

REACTIONS (6)
  - Ulna fracture [Unknown]
  - Radius fracture [Unknown]
  - Pallor [Recovered/Resolved]
  - Hyperhidrosis [Recovered/Resolved]
  - Pain [Recovered/Resolved]
  - Inadequate analgesia [Recovered/Resolved]
